FAERS Safety Report 9446412 (Version 5)
Quarter: 2013Q3

REPORT INFORMATION
  Report Type: Spontaneous
  Country: US (occurrence: US)
  Receive Date: 20130807
  Receipt Date: 20130904
  Transmission Date: 20140515
  Serious: Yes (Death)
  Sender: FDA-Public Use
  Company Number: US-PFIZER INC-2013221268

PATIENT
  Age: 13 Year
  Sex: Female

DRUGS (1)
  1. EPIPEN [Suspect]
     Indication: FOOD ALLERGY
     Dosage: 3 DF (EPIPENS), UNK
     Dates: start: 20130726

REACTIONS (3)
  - Drug ineffective [Fatal]
  - Hypersensitivity [Fatal]
  - Laryngeal oedema [Fatal]
